FAERS Safety Report 5927826-7 (Version None)
Quarter: 2008Q4

REPORT INFORMATION
  Report Type: 
  Country: None (occurrence: None)
  Receive Date: 20081023
  Receipt Date: 20081013
  Transmission Date: 20090506
  Serious: Yes (Other)
  Sender: FDA-Public Use
  Company Number: GB-ROCHE-591338

PATIENT
  Sex: Female
  Weight: 110.2 kg

DRUGS (7)
  1. ORLISTAT [Suspect]
     Indication: OBESITY
     Route: 048
     Dates: start: 20080602
  2. PERINDOPRIL [Concomitant]
     Indication: HYPERTENSION
     Route: 048
  3. DOMPERIDONE [Concomitant]
     Dosage: INDICATION: GASTRIC
     Route: 048
  4. NEXIUM [Concomitant]
     Dosage: INDICATION: GASTRIC
     Route: 048
  5. BENDROFLUMETHIAZIDE [Concomitant]
     Indication: HYPERTENSION
     Route: 048
  6. VENLAFAXINE HCL [Concomitant]
     Indication: DEPRESSION
     Route: 048
  7. SIMVASTATIN [Concomitant]
     Route: 048

REACTIONS (2)
  - SKIN CANCER [None]
  - TUMOUR HAEMORRHAGE [None]
